FAERS Safety Report 20618508 (Version 3)
Quarter: 2022Q1

REPORT INFORMATION
  Report Type: Spontaneous
  Country: US (occurrence: US)
  Receive Date: 20220321
  Receipt Date: 20220330
  Transmission Date: 20220423
  Serious: Yes (Other)
  Sender: FDA-Public Use
  Company Number: US-BIOGEN-2022BI01106493

PATIENT
  Age: 63 Year
  Sex: Female

DRUGS (3)
  1. SPINRAZA [Suspect]
     Active Substance: NUSINERSEN
     Indication: Spinal muscular atrophy
     Route: 065
  2. SPINRAZA [Suspect]
     Active Substance: NUSINERSEN
     Route: 037
     Dates: start: 20170515, end: 20201120
  3. EVRYSDI [Suspect]
     Active Substance: RISDIPLAM
     Indication: Product used for unknown indication
     Route: 065
     Dates: start: 202101, end: 202101

REACTIONS (8)
  - Hip fracture [Unknown]
  - Multiple fractures [Recovered/Resolved]
  - Patella fracture [Unknown]
  - Ligament sprain [Unknown]
  - Mobility decreased [Unknown]
  - Fractured coccyx [Unknown]
  - Dyspnoea [Recovered/Resolved]
  - Fall [Recovered/Resolved]

NARRATIVE: CASE EVENT DATE: 20201101
